FAERS Safety Report 13577044 (Version 2)
Quarter: 2017Q3

REPORT INFORMATION
  Report Type: Spontaneous
  Country: CH (occurrence: CH)
  Receive Date: 20170524
  Receipt Date: 20170801
  Transmission Date: 20171127
  Serious: Yes (Hospitalization)
  Sender: FDA-Public Use
  Company Number: CH-PFIZER INC-2017216769

PATIENT
  Age: 48 Year
  Sex: Male

DRUGS (15)
  1. XANAX [Suspect]
     Active Substance: ALPRAZOLAM
     Dosage: UNK
     Route: 048
     Dates: start: 201704, end: 20170429
  2. ZYPREXA [Concomitant]
     Active Substance: OLANZAPINE
     Dosage: 15 MG, 1X/DAY
  3. METHADONE [Suspect]
     Active Substance: METHADONE HYDROCHLORIDE
     Dosage: 70 MG, 1X/DAY
     Route: 048
     Dates: start: 201704
  4. ESCITALOPRAM [Concomitant]
     Active Substance: ESCITALOPRAM OXALATE
     Dosage: 20 MG, 1X/DAY
  5. METHADONE [Suspect]
     Active Substance: METHADONE HYDROCHLORIDE
     Indication: DRUG DEPENDENCE
     Dosage: 50 MG, 1X/DAY
     Route: 048
     Dates: start: 20170421, end: 20170424
  6. TRANXILIUM [Suspect]
     Active Substance: CLORAZEPATE DIPOTASSIUM
     Dosage: UNK
     Route: 048
     Dates: start: 201704, end: 20170429
  7. NICOTINELL [Concomitant]
     Active Substance: NICOTINE
     Dosage: 21 MG, DAILY (21 MG, 1X/24H)
  8. PURSANA [Concomitant]
     Active Substance: FIG FRUIT OIL\SORBITOL
     Dosage: 30 ML, 2X/DAY
  9. SEVRE LONG [Concomitant]
     Indication: DRUG DEPENDENCE
     Dosage: UP TO 1400 MG, DAILY AND TAPERED DOWN TO 400 MG DAILY
     Dates: start: 2016, end: 201704
  10. EVIPLERA [Concomitant]
     Active Substance: EMTRICITABINE\RILPIVIRINE\TENOFOVIR DISOPROXIL FUMARATE
     Indication: HIV INFECTION
     Dosage: 1 DF, 1X/DAY
     Dates: start: 2015
  11. IMPORTAL [Concomitant]
     Active Substance: LACTITOL
     Dosage: 15 ML, 3X/DAY
  12. BECOZYME /00003501/ [Concomitant]
     Active Substance: CALCIUM PANTOTHENATE\NIACINAMIDE\PYRIDOXINE HYDROCHLORIDE\RIBOFLAVIN\THIAMINE HYDROCHLORIDE
     Dosage: 1 DF, 1X/DAY
  13. METHADONE [Suspect]
     Active Substance: METHADONE HYDROCHLORIDE
     Dosage: 80 MG, 1X/DAY
     Route: 048
     Dates: start: 20170425, end: 201704
  14. LAXOBERON [Concomitant]
     Active Substance: SODIUM PICOSULFATE
     Dosage: 10 MG, 2X/DAY
  15. NICORETTE INALADOR [Concomitant]
     Dosage: 1 DF, UNK

REACTIONS (2)
  - Altered state of consciousness [Recovered/Resolved]
  - Respiratory distress [Recovered/Resolved]

NARRATIVE: CASE EVENT DATE: 20170425
